FAERS Safety Report 25190658 (Version 1)
Quarter: 2025Q2

REPORT INFORMATION
  Report Type: Spontaneous
  Country: US (occurrence: US)
  Receive Date: 20250411
  Receipt Date: 20250411
  Transmission Date: 20250717
  Serious: No
  Sender: ROCHE
  Company Number: US-ROCHE-10000255490

PATIENT
  Sex: Female

DRUGS (1)
  1. HEMLIBRA [Suspect]
     Active Substance: EMICIZUMAB-KXWH
     Indication: Haemophilia
     Dosage: (STRENGTH: 150MG/ML)
     Route: 058
     Dates: start: 202307

REACTIONS (3)
  - Off label use [Unknown]
  - Haemorrhage [Unknown]
  - Contusion [Unknown]
